FAERS Safety Report 8892530 (Version 1)
Quarter: 2012Q4

REPORT INFORMATION
  Report Type: 
  Country: US (occurrence: US)
  Receive Date: 20121107
  Receipt Date: 20121107
  Transmission Date: 20130627
  Serious: Yes (Hospitalization)
  Sender: FDA-Public Use
  Company Number: US-AMGEN-USASP2011058752

PATIENT
  Sex: Female

DRUGS (3)
  1. ENBREL [Suspect]
     Indication: RHEUMATOID ARTHRITIS
     Dosage: 25 mg, q2wk
     Dates: start: 20030101, end: 20111102
  2. ENBREL [Suspect]
     Indication: PSORIATIC ARTHROPATHY
  3. ENBREL [Suspect]
     Indication: OSTEOARTHRITIS

REACTIONS (4)
  - Cellulitis [Unknown]
  - Influenza like illness [Recovered/Resolved]
  - Rheumatoid arthritis [Recovered/Resolved]
  - Tooth extraction [Unknown]
